FAERS Safety Report 4952137-6 (Version None)
Quarter: 2006Q1

REPORT INFORMATION
  Report Type: 
  Country: None (occurrence: None)
  Receive Date: 20060322
  Receipt Date: 20060322
  Transmission Date: 20060701
  Serious: Yes (Death, Hospitalization)
  Sender: FDA-Public Use
  Company Number: None

PATIENT
  Sex: Female
  Weight: 78.5 kg

DRUGS (3)
  1. CISPLATIN [Suspect]
     Indication: NON-SMALL CELL LUNG CANCER
     Dosage: 189 MG
     Dates: start: 20050426
  2. DEXAMETHASONE TAB [Suspect]
     Dosage: 22 MG
     Dates: start: 20050425
  3. ETOPOSIDE [Suspect]
     Dosage: 475 MG
     Dates: start: 20050423

REACTIONS (14)
  - ASTHENIA [None]
  - ATRIAL FIBRILLATION [None]
  - BLOOD PRESSURE ABNORMAL [None]
  - DIARRHOEA [None]
  - DYSPHAGIA [None]
  - DYSPNOEA [None]
  - MUCOUS MEMBRANE DISORDER [None]
  - NAUSEA [None]
  - ORAL INTAKE REDUCED [None]
  - ORAL SOFT TISSUE DISORDER [None]
  - RENAL FAILURE ACUTE [None]
  - RESPIRATORY FAILURE [None]
  - RETCHING [None]
  - SKIN TURGOR DECREASED [None]
